FAERS Safety Report 9551592 (Version 1)
Quarter: 2013Q3

REPORT INFORMATION
  Report Type: Spontaneous
  Country: US (occurrence: US)
  Receive Date: 20130925
  Receipt Date: 20130925
  Transmission Date: 20140515
  Serious: Yes (Other)
  Sender: FDA-Public Use
  Company Number: US-ROCHE-1276168

PATIENT
  Sex: Female

DRUGS (8)
  1. AVASTIN [Suspect]
     Indication: OVARIAN CANCER
     Route: 042
     Dates: start: 201006
  2. AVASTIN [Suspect]
     Route: 042
     Dates: start: 20100930, end: 20110428
  3. AVASTIN [Suspect]
     Dosage: 2 DOSES
     Route: 042
     Dates: start: 201208
  4. AVASTIN [Suspect]
     Dosage: ADMINISTERED OVER 60 MINUTES
     Route: 042
     Dates: start: 20130911
  5. AVASTIN [Suspect]
     Route: 042
  6. GEMZAR [Concomitant]
     Indication: OVARIAN CANCER
     Dosage: STARTEED LAST WEEK
     Route: 065
  7. OXALIPLATIN [Concomitant]
     Indication: OVARIAN CANCER
     Route: 065
  8. BENADRYL (UNITED STATES) [Concomitant]
     Indication: HYPERSENSITIVITY
     Dosage: STARTEED LAST WEEK
     Route: 065

REACTIONS (11)
  - Anaphylactic reaction [Recovered/Resolved]
  - Drug hypersensitivity [Unknown]
  - Lip swelling [Unknown]
  - Pruritus [Unknown]
  - Diarrhoea [Not Recovered/Not Resolved]
  - Lacrimation increased [Unknown]
  - Lacrimation increased [Unknown]
  - Cognitive disorder [Unknown]
  - Dacryostenosis acquired [Unknown]
  - Upper-airway cough syndrome [Unknown]
  - Increased upper airway secretion [Unknown]
